FAERS Safety Report 7529613-5 (Version None)
Quarter: 2011Q2

REPORT INFORMATION
  Report Type: 
  Country: None (occurrence: None)
  Receive Date: 20110607
  Receipt Date: 20110519
  Transmission Date: 20111010
  Serious: Yes (Death)
  Sender: FDA-Public Use
  Company Number: A0789880A

PATIENT
  Age: 57 Year
  Sex: Male
  Weight: 98.6 kg

DRUGS (9)
  1. CRESTOR [Concomitant]
  2. AVANDIA [Suspect]
     Dosage: 8MG UNKNOWN
     Route: 065
     Dates: start: 19990501, end: 20060622
  3. GLUCOVANCE [Concomitant]
  4. CIALIS [Concomitant]
  5. FOLTX [Concomitant]
  6. LOTREL [Concomitant]
  7. LANTUS [Concomitant]
  8. VIAGRA [Concomitant]
  9. METANX [Concomitant]

REACTIONS (1)
  - MYOCARDIAL INFARCTION [None]
